FAERS Safety Report 10661665 (Version 2)
Quarter: 2014Q4

REPORT INFORMATION
  Report Type: Spontaneous
  Country: US (occurrence: None)
  Receive Date: 20141216
  Receipt Date: 20141231
  Transmission Date: 20150529
  Serious: Yes (Other)
  Sender: FDA-Public Use
  Company Number: 2014-US-016133

PATIENT
  Age: 38 Year
  Sex: Female
  Weight: 92.1 kg

DRUGS (7)
  1. XYREM [Suspect]
     Active Substance: SODIUM OXYBATE
     Indication: FIBROMYALGIA
     Dosage: 3 G, BID, ORAL
     Route: 048
     Dates: start: 200403, end: 2004
  2. LISINOPRIL. [Concomitant]
     Active Substance: LISINOPRIL
  3. PORTIA (ETHINYLESTRADIOL, LEVONORGESTREL) [Concomitant]
  4. CYCLOBENZAPRINE [Concomitant]
     Active Substance: CYCLOBENZAPRINE
  5. VITAMIN E [Concomitant]
     Active Substance: .ALPHA.-TOCOPHEROL
  6. FOLBIC (CYANOCOBALAMIN, FOLIC ACID, PYRIDOXINE HYDROCHLORIDE) [Concomitant]
  7. ZYRTEC [Concomitant]
     Active Substance: CETIRIZINE HYDROCHLORIDE

REACTIONS (8)
  - Off label use [None]
  - Cheyne-Stokes respiration [None]
  - Sleep apnoea syndrome [None]
  - Condition aggravated [None]
  - Upper respiratory tract infection [None]
  - Fall [None]
  - Intervertebral disc protrusion [None]
  - Back disorder [None]

NARRATIVE: CASE EVENT DATE: 201404
